FAERS Safety Report 8427254-9 (Version None)
Quarter: 2012Q2

REPORT INFORMATION
  Report Type: 
  Country: None (occurrence: None)
  Receive Date: 20120611
  Receipt Date: 20120604
  Transmission Date: 20120825
  Serious: Yes (Other)
  Sender: FDA-Public Use
  Company Number: US-GLAXOSMITHKLINE-A0970353A

PATIENT
  Age: 22 Year
  Sex: Female
  Weight: 42.7 kg

DRUGS (4)
  1. REQUIP [Concomitant]
  2. LAMOTRIGINE [Suspect]
     Indication: AFFECTIVE DISORDER
     Dosage: 150MG PER DAY
     Route: 048
  3. LAMICTAL [Suspect]
     Indication: AFFECTIVE DISORDER
     Dosage: 150MG PER DAY
     Route: 048
     Dates: start: 20101215
  4. ZOLOFT [Concomitant]

REACTIONS (2)
  - DIZZINESS [None]
  - CENTRAL NERVOUS SYSTEM LESION [None]
